FAERS Safety Report 9568369 (Version 1)
Quarter: 2013Q3

REPORT INFORMATION
  Report Type: Spontaneous
  Country: US (occurrence: US)
  Receive Date: 20130930
  Receipt Date: 20130930
  Transmission Date: 20140515
  Serious: No
  Sender: FDA-Public Use
  Company Number: US-AMGEN-USASP2013051839

PATIENT
  Age: 48 Year
  Sex: Male
  Weight: 135.15 kg

DRUGS (8)
  1. ENBREL [Suspect]
     Indication: PRODUCT USED FOR UNKNOWN INDICATION
     Dosage: 50 MG, QWK
     Route: 058
  2. ASPIRIN [Concomitant]
     Dosage: 81 MG, UNK
  3. PRAMIPEXOLE [Concomitant]
     Dosage: 1 MG, UNK
  4. LORAZEPAM [Concomitant]
     Dosage: 0.5 MG, UNK
  5. LOVASTATIN [Concomitant]
     Dosage: 20 MG, UNK
  6. CIALIS [Concomitant]
     Dosage: 20 MG, UNK
  7. ALEVE [Concomitant]
     Dosage: 220 MG, UNK
  8. MULTIVITAMINS, PLAIN [Concomitant]
     Dosage: UNK

REACTIONS (2)
  - Dyspnoea [Unknown]
  - Fatigue [Unknown]
